FAERS Safety Report 24566007 (Version 1)
Quarter: 2024Q4

REPORT INFORMATION
  Report Type: Other
  Country: US (occurrence: RO)
  Receive Date: 20241030
  Receipt Date: 20241030
  Transmission Date: 20250115
  Serious: Yes (Hospitalization)
  Sender: SAPTALIS PHARMACEUTICALS LLC
  Company Number: RO-Saptalis Pharmaceuticals LLC-2161879

PATIENT
  Age: 70 Year
  Sex: Male

DRUGS (1)
  1. LIKMEZ [Suspect]
     Active Substance: METRONIDAZOLE
     Indication: Clostridium test positive

REACTIONS (2)
  - Septic shock [Recovered/Resolved]
  - Drug ineffective [Recovered/Resolved]
